FAERS Safety Report 9155250 (Version 2)
Quarter: 2013Q2

REPORT INFORMATION
  Report Type: Spontaneous
  Country: US (occurrence: US)
  Receive Date: 20130311
  Receipt Date: 20130401
  Transmission Date: 20140414
  Serious: Yes (Other)
  Sender: FDA-Public Use
  Company Number: US-ELI_LILLY_AND_COMPANY-US201302001933

PATIENT
  Age: 51 Year
  Sex: Male
  Weight: 123 kg

DRUGS (10)
  1. BYDUREON [Suspect]
     Indication: TYPE 2 DIABETES MELLITUS
     Dosage: 2 MG, WEEKLY (1/W)
     Route: 058
     Dates: start: 20120705, end: 20130102
  2. BYETTA [Suspect]
     Dosage: UNK
     Dates: start: 20101012, end: 20120705
  3. METFORMIN [Concomitant]
     Indication: TYPE 2 DIABETES MELLITUS
     Dosage: 1000 MG, BID
     Dates: start: 20070518
  4. FENOFIBRIC ACID [Concomitant]
     Indication: HYPERLIPIDAEMIA
     Dosage: 135 MG, QD
     Dates: start: 20100824
  5. LISINOPRIL [Concomitant]
     Indication: HYPERTENSION
     Dosage: 10 MG, QD
     Dates: start: 20110824
  6. NIASPAN [Concomitant]
     Indication: LIPIDS INCREASED
     Dosage: 1500 MG, QD
     Dates: start: 20070531
  7. LOVAZA [Concomitant]
     Indication: LIPIDS INCREASED
     Dosage: 2 G, BID
     Dates: start: 20080826
  8. CRESTOR [Concomitant]
     Indication: LIPIDS INCREASED
     Dosage: 40 MG, QD
     Dates: start: 20101012
  9. ISOSORBIDE [Concomitant]
     Indication: CORONARY ARTERY DISEASE
     Dosage: 15 MG, QD
     Dates: start: 20070529
  10. ECOTRIN [Concomitant]
     Indication: CARDIOVASCULAR EVENT PROPHYLAXIS
     Dosage: 81 MG, QD

REACTIONS (3)
  - Injection site abscess [Recovered/Resolved]
  - Injection site nodule [Recovered/Resolved]
  - Nausea [Unknown]
